FAERS Safety Report 5934744-7 (Version None)
Quarter: 2008Q4

REPORT INFORMATION
  Report Type: 
  Country: None (occurrence: None)
  Receive Date: 20081029
  Receipt Date: 20081021
  Transmission Date: 20090506
  Serious: Yes (Death, Other)
  Sender: FDA-Public Use
  Company Number: JP-ABBOTT-08P-087-0484146-00

PATIENT
  Age: 77 Year
  Sex: Male

DRUGS (7)
  1. LEUPROLIDE ACETATE [Suspect]
     Indication: PROSTATE CANCER STAGE IV
     Route: 058
     Dates: start: 20061227, end: 20070830
  2. LEUPROLIDE ACETATE [Suspect]
     Dates: start: 20060712, end: 20061129
  3. BICALUTAMIDE [Concomitant]
     Indication: PROSTATE CANCER STAGE IV
     Route: 048
  4. TAMSULOSIN HCL [Concomitant]
     Indication: BENIGN PROSTATIC HYPERPLASIA
     Route: 048
     Dates: end: 20070923
  5. EVIPROSTAT [Concomitant]
     Indication: BENIGN PROSTATIC HYPERPLASIA
     Dosage: DAILY
     Route: 048
     Dates: end: 20070923
  6. REBAMIPIDE [Concomitant]
     Indication: GASTRITIS
     Dosage: DAILY
     Route: 048
     Dates: end: 20070923
  7. ETODOLAC [Concomitant]
     Indication: BACK PAIN
     Route: 048
     Dates: end: 20070923

REACTIONS (3)
  - DEPRESSED LEVEL OF CONSCIOUSNESS [None]
  - METASTASES TO BONE [None]
  - PROSTATE CANCER [None]
